FAERS Safety Report 11337083 (Version 3)
Quarter: 2015Q3

REPORT INFORMATION
  Report Type: Spontaneous
  Country: FR (occurrence: FR)
  Receive Date: 20150804
  Receipt Date: 20150929
  Transmission Date: 20151125
  Serious: Yes (Hospitalization)
  Sender: FDA-Public Use
  Company Number: FR-PFIZER INC-2015255929

PATIENT
  Age: 7 Year
  Sex: Female
  Weight: 15 kg

DRUGS (3)
  1. MICROPAKINE [Concomitant]
     Active Substance: VALPROIC ACID
     Indication: SEVERE MYOCLONIC EPILEPSY OF INFANCY
     Dosage: 1 DF (300MG AND 250MG) TWICE A DAY
     Route: 048
     Dates: start: 20081216
  2. GENOTONORM [Suspect]
     Active Substance: SOMATROPIN
     Indication: GROWTH RETARDATION
     Dosage: 1 MG, DAILY; 6  DAYS OUT OF 7
     Route: 058
     Dates: start: 20150724
  3. EPITOMAX [Concomitant]
     Active Substance: TOPIRAMATE
     Indication: SEVERE MYOCLONIC EPILEPSY OF INFANCY
     Dosage: 50 MG, 2X/DAY
     Route: 048
     Dates: start: 20090814

REACTIONS (2)
  - Seizure [Recovered/Resolved]
  - Pyrexia [Recovered/Resolved]

NARRATIVE: CASE EVENT DATE: 20150725
